FAERS Safety Report 10629972 (Version 2)
Quarter: 2015Q1

REPORT INFORMATION
  Report Type: Spontaneous
  Country: JP (occurrence: JP)
  Receive Date: 20141205
  Receipt Date: 20150128
  Transmission Date: 20150720
  Serious: Yes (Hospitalization)
  Sender: FDA-Public Use
  Company Number: JP-ROCHE-1501806

PATIENT
  Age: 70 Year
  Sex: Male
  Weight: 73 kg

DRUGS (20)
  1. AVASTIN [Suspect]
     Active Substance: BEVACIZUMAB
     Indication: COLON CANCER METASTATIC
     Route: 041
     Dates: start: 20140825, end: 20140825
  2. CALCIUM LEVOFOLINATE [Concomitant]
     Active Substance: LEVOLEUCOVORIN CALCIUM
     Indication: COLON CANCER METASTATIC
     Route: 041
     Dates: start: 20140825, end: 20140825
  3. PARIET [Concomitant]
     Active Substance: RABEPRAZOLE SODIUM
     Route: 048
  4. MAGNESOL (JAPAN) [Concomitant]
     Dosage: DOSAGE IS UNCERTAIN.
     Route: 065
     Dates: start: 20140825
  5. FEBURIC [Concomitant]
     Active Substance: FEBUXOSTAT
     Route: 048
  6. MYONAL (JAPAN) [Concomitant]
     Active Substance: EPERISONE HYDROCHLORIDE
     Route: 048
  7. DECADRON [Concomitant]
     Active Substance: DEXAMETHASONE
     Dosage: DOSAGE IS UNCERTAIN.
     Route: 065
  8. CALCICOL [Concomitant]
     Active Substance: CALCIUM GLUCONATE
     Dosage: DOSAGE IS UNCERTAIN.
     Route: 065
     Dates: start: 20140825
  9. LOXONIN [Concomitant]
     Active Substance: LOXOPROFEN SODIUM
     Route: 048
  10. FLIVAS [Concomitant]
     Active Substance: NAFTOPIDIL
     Route: 048
  11. ELPLAT [Concomitant]
     Active Substance: OXALIPLATIN
     Indication: COLON CANCER METASTATIC
     Route: 041
     Dates: start: 20140825
  12. EMEND [Concomitant]
     Active Substance: APREPITANT
     Dosage: DOSAGE IS UNCERTAIN.
     Route: 065
     Dates: start: 20140825, end: 20140825
  13. EVOXAC [Concomitant]
     Active Substance: CEVIMELINE HYDROCHLORIDE
     Route: 048
  14. MYSLEE [Concomitant]
     Active Substance: ZOLPIDEM TARTRATE
     Dosage: DOSAGE UNCERTAIN.
     Route: 048
  15. 5-FU [Concomitant]
     Active Substance: FLUOROURACIL
     Route: 041
     Dates: start: 20140825, end: 20140827
  16. ALOXI [Concomitant]
     Active Substance: PALONOSETRON HYDROCHLORIDE
     Route: 065
     Dates: start: 20140825, end: 20140825
  17. OPALMON [Concomitant]
     Active Substance: LIMAPROST
     Route: 048
  18. DAIKENCHUTO [Concomitant]
     Active Substance: HERBALS
     Route: 048
  19. LENDORMIN D [Concomitant]
     Active Substance: BROTIZOLAM
     Route: 048
  20. 5-FU [Concomitant]
     Active Substance: FLUOROURACIL
     Indication: COLON CANCER METASTATIC
     Route: 040
     Dates: start: 20140825, end: 20140825

REACTIONS (2)
  - Large intestinal ulcer [Recovered/Resolved]
  - Phlebosclerosis [Recovered/Resolved]

NARRATIVE: CASE EVENT DATE: 20140827
